FAERS Safety Report 25082485 (Version 1)
Quarter: 2025Q1

REPORT INFORMATION
  Report Type: Spontaneous
  Country: US (occurrence: US)
  Receive Date: 20250317
  Receipt Date: 20250317
  Transmission Date: 20250409
  Serious: Yes (Other)
  Sender: COOPERSURGICAL
  Company Number: US-COOPERSURGICAL, INC.-2025CPS001840

PATIENT
  Age: 34 Year
  Sex: Female
  Weight: 134.69 kg

DRUGS (1)
  1. PARAGARD T 380A [Suspect]
     Active Substance: COPPER
     Route: 015
     Dates: start: 20120406

REACTIONS (18)
  - Colectomy [Recovered/Resolved]
  - Reproductive complication associated with device [Recovered/Resolved]
  - Device breakage [Recovered/Resolved]
  - Foreign body in reproductive tract [Recovered/Resolved]
  - Complication of device removal [Recovered/Resolved]
  - Embedded device [Recovered/Resolved]
  - Uterine perforation [Recovered/Resolved]
  - Device dislocation [Recovered/Resolved]
  - Intestinal perforation [Recovered/Resolved]
  - Emotional disorder [Unknown]
  - Sexual dysfunction [Unknown]
  - Fear [Unknown]
  - Depression [Unknown]
  - Device issue [Recovered/Resolved]
  - Procedural pain [Unknown]
  - Pain [Unknown]
  - Adhesion [Unknown]
  - Menstrual disorder [Unknown]

NARRATIVE: CASE EVENT DATE: 20160902
